FAERS Safety Report 14463248 (Version 1)
Quarter: 2018Q1

REPORT INFORMATION
  Report Type: Other
  Country: US (occurrence: US)
  Receive Date: 20180130
  Receipt Date: 20180130
  Transmission Date: 20180509
  Serious: Yes (Hospitalization)
  Sender: FDA-Public Use
  Company Number: US-ACORDA-ACO_146084_2018

PATIENT
  Age: 51 Year
  Sex: Female

DRUGS (1)
  1. AMPYRA [Suspect]
     Active Substance: DALFAMPRIDINE
     Indication: GAIT DISTURBANCE
     Dosage: 10 MG, BID
     Route: 048
     Dates: start: 201710, end: 20180115

REACTIONS (9)
  - Therapy cessation [Not Recovered/Not Resolved]
  - Decreased appetite [Recovered/Resolved]
  - Mucous stools [Recovered/Resolved]
  - Diverticulitis [Recovered/Resolved]
  - Multiple sclerosis relapse [Recovering/Resolving]
  - Urinary tract infection [Recovered/Resolved]
  - Asthenia [Unknown]
  - Abdominal pain upper [Recovered/Resolved]
  - Nausea [Recovered/Resolved]

NARRATIVE: CASE EVENT DATE: 20180104
